FAERS Safety Report 5335957-8 (Version None)
Quarter: 2007Q2

REPORT INFORMATION
  Report Type: 
  Country: None (occurrence: None)
  Receive Date: 20070305
  Receipt Date: 20060206
  Transmission Date: 20071010
  Serious: Yes (Death)
  Sender: FDA-Public Use
  Company Number: MK200602-0184-1

PATIENT
  Age: 26 Year
  Sex: Male

DRUGS (2)
  1. CLOMIPRAMINE (DOSE AND MFR UNKNOWN) [Suspect]
  2. ETHANOL [Concomitant]

REACTIONS (1)
  - DRUG TOXICITY [None]
